FAERS Safety Report 13449772 (Version 1)
Quarter: 2017Q2

REPORT INFORMATION
  Report Type: Spontaneous
  Country: US (occurrence: US)
  Receive Date: 20170417
  Receipt Date: 20170417
  Transmission Date: 20170830
  Serious: No
  Sender: FDA-Public Use
  Company Number: US-BANPHARM-20164752

PATIENT
  Age: 86 Year
  Sex: Female
  Weight: 65.32 kg

DRUGS (7)
  1. CONTHROINE [Concomitant]
  2. VITIMIN D 3 [Concomitant]
  3. GLUCOSAMINE [Concomitant]
     Active Substance: GLUCOSAMINE
  4. SYNTHROID [Concomitant]
     Active Substance: LEVOTHYROXINE SODIUM
  5. ALEVE [Suspect]
     Active Substance: NAPROXEN SODIUM
     Indication: PAIN
     Dosage: 2 DF, Q12H,
     Route: 048
     Dates: start: 2012
  6. MULTI VITIMIN [Concomitant]
  7. ALEVE [Suspect]
     Active Substance: NAPROXEN SODIUM
     Indication: PAIN
     Dosage: 1 DF, Q4H,
     Route: 048
     Dates: start: 20160308

REACTIONS (3)
  - Incorrect drug administration rate [Unknown]
  - Drug ineffective [Unknown]
  - Incorrect drug administration duration [Unknown]

NARRATIVE: CASE EVENT DATE: 20160308
